FAERS Safety Report 4803438-3 (Version None)
Quarter: 2005Q4

REPORT INFORMATION
  Report Type: 
  Country: None (occurrence: None)
  Receive Date: 20051014
  Receipt Date: 20050928
  Transmission Date: 20060501
  Serious: Yes (Hospitalization)
  Sender: FDA-Public Use
  Company Number: 143280USA

PATIENT
  Age: 37 Year
  Sex: Male

DRUGS (2)
  1. PIMOZIDE [Suspect]
     Dosage: ORAL
     Route: 048
  2. BROMAZEPAM [Concomitant]

REACTIONS (7)
  - BLOOD PRESSURE INCREASED [None]
  - ELECTROCARDIOGRAM QT PROLONGED [None]
  - ELECTROCARDIOGRAM T WAVE PEAKED [None]
  - INTENTIONAL DRUG MISUSE [None]
  - OVERDOSE [None]
  - RESPIRATORY RATE INCREASED [None]
  - SUICIDE ATTEMPT [None]
